FAERS Safety Report 12301997 (Version 1)
Quarter: 2016Q2

REPORT INFORMATION
  Report Type: Spontaneous
  Country: JP (occurrence: JP)
  Receive Date: 20160425
  Receipt Date: 20160425
  Transmission Date: 20160815
  Serious: Yes (Hospitalization, Other)
  Sender: FDA-Public Use
  Company Number: JP-BAYER-2016-076624

PATIENT
  Age: 71 Year
  Sex: Male

DRUGS (1)
  1. MACROGOL 3350 [Suspect]
     Active Substance: POLYETHYLENE GLYCOL 3350
     Indication: COLONOSCOPY
     Dosage: 2000 ML, UNK

REACTIONS (4)
  - Vomiting [None]
  - Pleural effusion [None]
  - Oesophageal rupture [Recovered/Resolved]
  - Pneumomediastinum [None]
